FAERS Safety Report 8224869-8 (Version None)
Quarter: 2012Q1

REPORT INFORMATION
  Report Type: 
  Country: None (occurrence: None)
  Receive Date: 20120321
  Receipt Date: 20120312
  Transmission Date: 20120608
  Serious: Yes (Death, Hospitalization, Other)
  Sender: FDA-Public Use
  Company Number: JP-ROCHE-725383

PATIENT
  Sex: Female
  Weight: 42 kg

DRUGS (9)
  1. HERCEPTIN [Suspect]
     Indication: BREAST CANCER METASTATIC
     Route: 041
     Dates: start: 20070701, end: 20070701
  2. XELODA [Suspect]
     Indication: BREAST CANCER METASTATIC
     Dosage: DRUG NAME REPORTED AS XELODA 300, DOSAGE IS UNCERTAIN.
     Route: 048
     Dates: start: 20090827, end: 20100209
  3. HERCEPTIN [Suspect]
     Route: 041
     Dates: start: 20100223, end: 20100616
  4. TYKERB [Concomitant]
     Route: 048
  5. PACLITAXEL [Suspect]
     Indication: BREAST CANCER METASTATIC
     Dosage: DOSAGE IS UNCERTAIN
     Route: 041
     Dates: start: 20100223, end: 20100616
  6. HERCEPTIN [Suspect]
     Route: 041
     Dates: start: 20070801, end: 20090201
  7. ZOMETA [Concomitant]
     Route: 041
     Dates: start: 20090301
  8. HERCEPTIN [Suspect]
     Route: 041
     Dates: start: 20090301, end: 20090801
  9. TYKERB [Concomitant]
     Dosage: DOSAGE IS UNCERTAIN.
     Route: 048

REACTIONS (4)
  - INTERSTITIAL LUNG DISEASE [None]
  - MALIGNANT PLEURAL EFFUSION [None]
  - DISEASE PROGRESSION [None]
  - RASH [None]
